FAERS Safety Report 17646209 (Version 1)
Quarter: 2020Q2

REPORT INFORMATION
  Report Type: Spontaneous
  Country: US (occurrence: US)
  Receive Date: 20200408
  Receipt Date: 20200408
  Transmission Date: 20200713
  Serious: Yes (Other)
  Sender: FDA-Public Use
  Company Number: US-ELI_LILLY_AND_COMPANY-US202004000343

PATIENT
  Age: 63 Year

DRUGS (3)
  1. DEPO-TESTOSTERONE [Concomitant]
     Active Substance: TESTOSTERONE CYPIONATE
     Indication: TRANS-SEXUALISM
  2. QUINIDINE GLUCONATE. [Suspect]
     Active Substance: QUINIDINE GLUCONATE
     Indication: VENTRICULAR ARRHYTHMIA
     Dosage: UNK, UNKNOWN
     Route: 065
  3. QUINIDINE GLUCONATE. [Suspect]
     Active Substance: QUINIDINE GLUCONATE
     Dosage: UNK, DAILY (BEDTIME)
     Route: 065

REACTIONS (3)
  - Ventricular extrasystoles [Recovered/Resolved]
  - Angioedema [Unknown]
  - Drug hypersensitivity [Unknown]
